FAERS Safety Report 6176282-5 (Version None)
Quarter: 2009Q2

REPORT INFORMATION
  Report Type: 
  Country: None (occurrence: None)
  Receive Date: 20090501
  Receipt Date: 20090423
  Transmission Date: 20091009
  Serious: Yes (Other)
  Sender: FDA-Public Use
  Company Number: B0572493A

PATIENT
  Age: 81 Year
  Sex: Female

DRUGS (2)
  1. AMOXICILLIN SODIUM + CLAVULANIC ACID [Suspect]
  2. CEFEPIME [Suspect]

REACTIONS (1)
  - STATUS EPILEPTICUS [None]
